FAERS Safety Report 23154125 (Version 1)
Quarter: 2023Q4

REPORT INFORMATION
  Report Type: Spontaneous
  Country: CN (occurrence: CN)
  Receive Date: 20231107
  Receipt Date: 20231107
  Transmission Date: 20240109
  Serious: Yes (Other)
  Sender: FDA-Public Use
  Company Number: CN-PFIZER INC-PV202300178996

PATIENT
  Age: 79 Year
  Sex: Female
  Weight: 42 kg

DRUGS (1)
  1. TYGACIL [Suspect]
     Active Substance: TIGECYCLINE
     Indication: Anti-infective therapy
     Dosage: 50 MG, 2X/DAY
     Route: 041
     Dates: start: 20231007, end: 20231025

REACTIONS (8)
  - Coagulopathy [Unknown]
  - Bronchial haemorrhage [Unknown]
  - Bronchial oedema [Unknown]
  - Bronchial mucosa hyperaemia [Unknown]
  - Platelet count abnormal [Unknown]
  - Incorrect dose administered [Unknown]
  - Off label use [Unknown]
  - Product use issue [Unknown]

NARRATIVE: CASE EVENT DATE: 20231007
